FAERS Safety Report 14651242 (Version 12)
Quarter: 2019Q1

REPORT INFORMATION
  Report Type: Spontaneous
  Country: AT (occurrence: AT)
  Receive Date: 20180316
  Receipt Date: 20190211
  Transmission Date: 20190417
  Serious: Yes (Hospitalization, Other)
  Sender: FDA-Public Use
  Company Number: PHHY2018AT045159

PATIENT
  Age: 27 Year
  Sex: Male

DRUGS (10)
  1. PREDNISOLONE. [Suspect]
     Active Substance: PREDNISOLONE
     Indication: RENAL TRANSPLANT
     Dosage: 5 MG, QD
     Route: 065
  2. SIROLIMUS. [Suspect]
     Active Substance: SIROLIMUS
     Indication: RENAL TRANSPLANT
     Dosage: UNK (SWITCHED PREOPERATIVE THE IMMUNOSUPPRESSION BACK TO THE TACROLIMUS BASED REGIMEN)
     Route: 065
  3. MYCOPHENOLATE MOFETIL. [Suspect]
     Active Substance: MYCOPHENOLATE MOFETIL
     Indication: RENAL TRANSPLANT
     Dosage: 1 G, QD (INCREASED TO 1G DAILY)
     Route: 065
  4. MYCOPHENOLATE MOFETIL. [Suspect]
     Active Substance: MYCOPHENOLATE MOFETIL
     Indication: IMMUNOSUPPRESSANT DRUG THERAPY
     Dosage: 500 MG, QD (REDUCED THE DOSAGE OF MMF FROM 1 TO 500 MG)
     Route: 065
  5. TACROLIMUS. [Suspect]
     Active Substance: TACROLIMUS
     Indication: IMMUNOSUPPRESSANT DRUG THERAPY
  6. TACROLIMUS. [Suspect]
     Active Substance: TACROLIMUS
     Indication: RENAL TRANSPLANT
     Dosage: UNK (TROUGH LEVEL BETWEEN 8-10 MICROG/L
     Route: 065
  7. PREDNISOLONE. [Suspect]
     Active Substance: PREDNISOLONE
     Dosage: 7.5 MG, QD (GRADUALLY TAPERED TO 7.5MG OVER A PERIOD OF FOUR MONTHS)
     Route: 065
  8. SIROLIMUS. [Suspect]
     Active Substance: SIROLIMUS
     Indication: IMMUNOSUPPRESSANT DRUG THERAPY
  9. SIROLIMUS. [Suspect]
     Active Substance: SIROLIMUS
     Indication: IMMUNOSUPPRESSANT DRUG THERAPY
  10. PREDNISOLONE. [Suspect]
     Active Substance: PREDNISOLONE
     Indication: IMMUNOSUPPRESSANT DRUG THERAPY
     Dosage: 20 MG, QD
     Route: 048

REACTIONS (9)
  - Splenic neoplasm malignancy unspecified [Recovered/Resolved]
  - Epstein-Barr virus infection [Recovered/Resolved]
  - Proteinuria [Recovering/Resolving]
  - Smooth muscle cell neoplasm [Recovered/Resolved]
  - Liver disorder [Recovered/Resolved]
  - Spleen disorder [Recovered/Resolved]
  - Blood creatinine decreased [Recovering/Resolving]
  - Hepatic neoplasm [Recovered/Resolved]
  - Transplant rejection [Unknown]
